FAERS Safety Report 16516295 (Version 1)
Quarter: 2019Q3

REPORT INFORMATION
  Report Type: Spontaneous
  Country: US (occurrence: US)
  Receive Date: 20190702
  Receipt Date: 20190702
  Transmission Date: 20191004
  Serious: Yes (Hospitalization)
  Sender: FDA-Public Use
  Company Number: None

PATIENT
  Age: 19 Year
  Sex: Male

DRUGS (12)
  1. METFORMIN [Concomitant]
     Active Substance: METFORMIN HYDROCHLORIDE
  2. BACTRIM [Concomitant]
     Active Substance: SULFAMETHOXAZOLE\TRIMETHOPRIM
  3. ZORTRESS [Suspect]
     Active Substance: EVEROLIMUS
     Indication: EPILEPSY
     Dosage: ?          OTHER FREQUENCY:Q 12 HRS;?
     Route: 048
     Dates: start: 20171217
  4. MAGNESIUM [Concomitant]
     Active Substance: MAGNESIUM
  5. VIMPAT [Concomitant]
     Active Substance: LACOSAMIDE
  6. VITAMIN D [Concomitant]
     Active Substance: VITAMIN D NOS
  7. ZORTRESS [Suspect]
     Active Substance: EVEROLIMUS
     Indication: EPILEPSY
     Dosage: ?          OTHER FREQUENCY:Q 12 HRS;?
     Route: 048
     Dates: start: 20171217
  8. ASPIRIN. [Concomitant]
     Active Substance: ASPIRIN
  9. ENALAPRIL [Concomitant]
     Active Substance: ENALAPRIL
  10. PRAVASTATIN. [Concomitant]
     Active Substance: PRAVASTATIN
  11. METOPROLOL. [Concomitant]
     Active Substance: METOPROLOL
  12. TACROLIMUS. [Concomitant]
     Active Substance: TACROLIMUS

REACTIONS (1)
  - Cerebral lobotomy [None]

NARRATIVE: CASE EVENT DATE: 20190621
